FAERS Safety Report 15311856 (Version 12)
Quarter: 2018Q4

REPORT INFORMATION
  Report Type: Report from Study
  Country: US (occurrence: US)
  Receive Date: 20180823
  Receipt Date: 20181204
  Transmission Date: 20190204
  Serious: Yes (Hospitalization)
  Sender: FDA-Public Use
  Company Number: US-GILEAD-2018-0357821

PATIENT
  Age: 38 Year
  Sex: Female

DRUGS (6)
  1. AMBRISENTAN [Suspect]
     Active Substance: AMBRISENTAN
     Indication: PRODUCT USED FOR UNKNOWN INDICATION
     Dosage: 10 MG, QD
     Route: 065
     Dates: start: 20170314
  2. ORENITRAM [Suspect]
     Active Substance: TREPROSTINIL
     Dosage: 3 MG, TID
     Route: 048
  3. REMODULIN [Concomitant]
     Active Substance: TREPROSTINIL
  4. ORENITRAM [Suspect]
     Active Substance: TREPROSTINIL
     Indication: PRODUCT USED FOR UNKNOWN INDICATION
     Dosage: 6 MG, TID
     Route: 048
  5. ORENITRAM [Suspect]
     Active Substance: TREPROSTINIL
     Dosage: 5.5 MG, TID
     Route: 048
  6. ADCIRCA [Concomitant]
     Active Substance: TADALAFIL

REACTIONS (24)
  - Musculoskeletal discomfort [Unknown]
  - Blood pressure increased [Not Recovered/Not Resolved]
  - Back pain [Not Recovered/Not Resolved]
  - Dyspnoea [Unknown]
  - Diarrhoea [Not Recovered/Not Resolved]
  - Flushing [Not Recovered/Not Resolved]
  - Diarrhoea [Unknown]
  - Pain [Not Recovered/Not Resolved]
  - Abdominal pain [Unknown]
  - Chest pain [Unknown]
  - Glycosylated haemoglobin increased [Unknown]
  - Catheter site pain [Unknown]
  - Malaise [Unknown]
  - Fatigue [Not Recovered/Not Resolved]
  - Catheter site erythema [Unknown]
  - Palpitations [Unknown]
  - Musculoskeletal stiffness [Not Recovered/Not Resolved]
  - Flatulence [Not Recovered/Not Resolved]
  - Chest discomfort [Unknown]
  - Headache [Unknown]
  - Oxygen saturation decreased [Not Recovered/Not Resolved]
  - Abdominal pain upper [Not Recovered/Not Resolved]
  - Headache [Not Recovered/Not Resolved]
  - Chest pain [Not Recovered/Not Resolved]

NARRATIVE: CASE EVENT DATE: 20181005
